FAERS Safety Report 7133899-9 (Version None)
Quarter: 2010Q4

REPORT INFORMATION
  Report Type: 
  Country: None (occurrence: None)
  Receive Date: 20101203
  Receipt Date: 20101115
  Transmission Date: 20110411
  Serious: Yes (Hospitalization, Other)
  Sender: FDA-Public Use
  Company Number: US-BAYER-201023198NA

PATIENT

DRUGS (4)
  1. YASMIN [Suspect]
     Route: 048
     Dates: start: 20051201, end: 20080601
  2. YASMIN [Suspect]
     Indication: ACNE
  3. YASMIN [Suspect]
     Indication: PREMENSTRUAL SYNDROME
  4. ADDERALL 10 [Concomitant]

REACTIONS (13)
  - ALOPECIA [None]
  - AXILLARY VEIN THROMBOSIS [None]
  - DEEP VEIN THROMBOSIS [None]
  - FEELING COLD [None]
  - HYPOAESTHESIA [None]
  - INJURY [None]
  - JOINT CREPITATION [None]
  - PAGET-SCHROETTER SYNDROME [None]
  - PULMONARY EMBOLISM [None]
  - RAYNAUD'S PHENOMENON [None]
  - SKIN DISCOLOURATION [None]
  - SUBCLAVIAN VEIN THROMBOSIS [None]
  - THORACIC OUTLET SYNDROME [None]
